FAERS Safety Report 12314673 (Version 2)
Quarter: 2016Q2

REPORT INFORMATION
  Report Type: Spontaneous
  Country: CN (occurrence: CN)
  Receive Date: 20160428
  Receipt Date: 20160506
  Transmission Date: 20160815
  Serious: Yes (Hospitalization)
  Sender: FDA-Public Use
  Company Number: CN-009507513-1604CHN016065

PATIENT
  Age: 68 Year
  Sex: Male
  Weight: 58 kg

DRUGS (1)
  1. BETAMETHASONE SODIUM PHOSPHATE [Suspect]
     Active Substance: BETAMETHASONE SODIUM PHOSPHATE
     Indication: ANTIALLERGIC THERAPY
     Dosage: 1 ML, QD
     Route: 030
     Dates: start: 20151101, end: 20151101

REACTIONS (1)
  - Rash [Unknown]

NARRATIVE: CASE EVENT DATE: 20151102
